FAERS Safety Report 13388420 (Version 2)
Quarter: 2017Q2

REPORT INFORMATION
  Report Type: Spontaneous
  Country: JP (occurrence: JP)
  Receive Date: 20170330
  Receipt Date: 20170406
  Transmission Date: 20170830
  Serious: Yes (Hospitalization, Other)
  Sender: FDA-Public Use
  Company Number: JP-GLAXOSMITHKLINE-JP2017JPN040807

PATIENT
  Age: 77 Year
  Sex: Male
  Weight: 42 kg

DRUGS (13)
  1. CERNILTON [Concomitant]
     Dosage: 2 DF, BID
     Dates: start: 20161220
  2. MEVALOTIN [Concomitant]
     Active Substance: PRAVASTATIN SODIUM
     Dosage: 10 MG, QD
     Dates: start: 20161213
  3. ARTIST [Concomitant]
     Active Substance: CARVEDILOL
     Dosage: 15 MG, 1D
     Dates: start: 20161213
  4. URALYT-U [Concomitant]
     Active Substance: POTASSIUM CITRATE\TRISODIUM CITRATE DIHYDRATE
     Dosage: 1 G, TID
     Dates: start: 20161213
  5. FLIVAS [Concomitant]
     Active Substance: NAFTOPIDIL
     Dosage: 25 MG, QD
     Dates: start: 20161220
  6. MAGNESIUM OXIDE. [Concomitant]
     Active Substance: MAGNESIUM OXIDE
     Dosage: 0.5 G, TID
     Dates: start: 20161213
  7. VALTREX [Suspect]
     Active Substance: VALACYCLOVIR HYDROCHLORIDE
     Indication: HERPES ZOSTER
     Dosage: 1000 MG, TID
     Route: 048
     Dates: start: 20170314, end: 20170321
  8. BETANIS [Concomitant]
     Active Substance: MIRABEGRON
     Dosage: 25 MG, QD
     Dates: start: 20161220
  9. DIOVAN [Concomitant]
     Active Substance: VALSARTAN
     Dosage: 20 MG, QD
     Dates: start: 20161213
  10. GASLON N OD [Concomitant]
     Dosage: 4 MG, QD
     Dates: start: 20161213
  11. ZALUTIA [Concomitant]
     Active Substance: TADALAFIL
     Dosage: 5 MG, QD
     Dates: start: 20161220
  12. ELIQUIS [Concomitant]
     Active Substance: APIXABAN
     Dosage: 5 MG, BID
     Dates: start: 20161213
  13. ALOSENN [Concomitant]
     Active Substance: SENNA LEAF
     Dosage: 0.5 G, QD
     Dates: start: 20161220

REACTIONS (6)
  - Suicide attempt [Not Recovered/Not Resolved]
  - Renal impairment [Not Recovered/Not Resolved]
  - Fear [Recovering/Resolving]
  - Confusional state [Recovering/Resolving]
  - Screaming [Recovered/Resolved]
  - Psychiatric symptom [Recovering/Resolving]

NARRATIVE: CASE EVENT DATE: 20170322
